FAERS Safety Report 8375753-0 (Version None)
Quarter: 2012Q2

REPORT INFORMATION
  Report Type: 
  Country: None (occurrence: None)
  Receive Date: 20120518
  Receipt Date: 20120518
  Transmission Date: 20120825
  Serious: Yes (Hospitalization)
  Sender: FDA-Public Use
  Company Number: None

PATIENT
  Sex: Male
  Weight: 59.9 kg

DRUGS (2)
  1. TAXOL [Suspect]
     Dosage: 270 MG
  2. CARBOPLATIN [Suspect]
     Dosage: 900 MG

REACTIONS (2)
  - DYSPHAGIA [None]
  - HYPERTENSION [None]
